FAERS Safety Report 16435687 (Version 1)
Quarter: 2019Q2

REPORT INFORMATION
  Report Type: Spontaneous
  Country: US (occurrence: US)
  Receive Date: 20190614
  Receipt Date: 20190614
  Transmission Date: 20190711
  Serious: No
  Sender: FDA-Public Use
  Company Number: US-JNJFOC-20170205993

PATIENT
  Sex: Female

DRUGS (4)
  1. NEURONTIN [Concomitant]
     Active Substance: GABAPENTIN
     Indication: PAIN IN EXTREMITY
     Route: 065
  2. TYLENOL EXTRA STRENGTH [Suspect]
     Active Substance: ACETAMINOPHEN
     Indication: ANALGESIC THERAPY
     Route: 065
  3. NEURONTIN [Concomitant]
     Active Substance: GABAPENTIN
     Indication: PAIN IN EXTREMITY
     Dosage: 1 CAPSULE AT NIGHT FOR 3 DAYS TO 2 CAPSULES AT NIGHT FOR 3 DAYSTO 3 CAPSULES AT NIGHT
     Route: 065
  4. NEURONTIN [Concomitant]
     Active Substance: GABAPENTIN
     Indication: PAIN IN EXTREMITY
     Route: 065

REACTIONS (1)
  - Drug ineffective [Unknown]
